FAERS Safety Report 14314136 (Version 1)
Quarter: 2017Q4

REPORT INFORMATION
  Report Type: Spontaneous
  Country: US (occurrence: US)
  Receive Date: 20171220
  Receipt Date: 20171220
  Transmission Date: 20180321
  Serious: No
  Sender: FDA-Public Use
  Company Number: None

PATIENT
  Age: 45 Year
  Sex: Male

DRUGS (1)
  1. HUMIRA [Suspect]
     Active Substance: ADALIMUMAB
     Indication: PSORIASIS
     Route: 058
     Dates: start: 20170919, end: 20171130

REACTIONS (5)
  - Lethargy [None]
  - Blood urine present [None]
  - Renal pain [None]
  - Pain [None]
  - Anger [None]

NARRATIVE: CASE EVENT DATE: 20171130
